FAERS Safety Report 7260945-4 (Version None)
Quarter: 2011Q1

REPORT INFORMATION
  Report Type: 
  Country: None (occurrence: None)
  Receive Date: 20110130
  Receipt Date: 20101228
  Transmission Date: 20110831
  Serious: No
  Sender: FDA-Public Use
  Company Number: US-ABBOTT-10P-163-0693917-00

PATIENT
  Sex: Female
  Weight: 127.12 kg

DRUGS (15)
  1. NEURONTIN [Concomitant]
     Indication: FIBROMYALGIA
     Route: 048
  2. FOLIC ACID [Concomitant]
     Indication: VITAMIN SUPPLEMENTATION
     Route: 048
  3. NEURONTIN [Concomitant]
     Indication: SPINAL COLUMN STENOSIS
  4. CYMBALTA [Concomitant]
     Indication: FIBROMYALGIA
     Route: 048
  5. NORVASC [Concomitant]
     Indication: HYPERTENSION
     Route: 048
  6. ZANTAC [Concomitant]
     Indication: GASTROOESOPHAGEAL REFLUX DISEASE
     Route: 048
  7. NEURONTIN [Concomitant]
     Indication: INTERVERTEBRAL DISC PROTRUSION
  8. LOTENSIN [Concomitant]
     Indication: HYPERTENSION
     Route: 048
  9. SINGULAIR [Concomitant]
     Indication: HYPERSENSITIVITY
  10. FLOVENT [Concomitant]
     Indication: ASTHMA
     Route: 055
  11. HUMIRA [Suspect]
     Indication: PSORIATIC ARTHROPATHY
     Route: 058
     Dates: start: 20100801, end: 20101101
  12. CYMBALTA [Concomitant]
     Indication: DEPRESSION
  13. NASACORT AQ [Concomitant]
     Indication: HYPERSENSITIVITY
     Route: 045
  14. ZIAC [Concomitant]
     Indication: HYPERTENSION
     Dosage: 10/6.25 ONCE A DAY; 1 IN 1 DAY
     Route: 048
  15. SINGULAIR [Concomitant]
     Indication: ASTHMA
     Route: 048

REACTIONS (4)
  - AXILLARY MASS [None]
  - HEPATIC ENZYME INCREASED [None]
  - ARTHRALGIA [None]
  - DRUG INEFFECTIVE [None]
